FAERS Safety Report 8384561-6 (Version None)
Quarter: 2012Q2

REPORT INFORMATION
  Report Type: 
  Country: None (occurrence: None)
  Receive Date: 20120524
  Receipt Date: 20120517
  Transmission Date: 20120825
  Serious: No
  Sender: FDA-Public Use
  Company Number: US-PFIZER INC-2012121088

PATIENT
  Sex: Female

DRUGS (2)
  1. COUMADIN [Concomitant]
     Dosage: UNK
  2. ZITHROMAX [Suspect]
     Dosage: 3 TABLETS

REACTIONS (1)
  - VAGINAL DISCHARGE [None]
